FAERS Safety Report 13784711 (Version 7)
Quarter: 2020Q3

REPORT INFORMATION
  Report Type: Report from Study
  Country: CN (occurrence: CN)
  Receive Date: 20170725
  Receipt Date: 20200921
  Transmission Date: 20201105
  Serious: Yes (Hospitalization, Other)
  Sender: FDA-Public Use
  Company Number: CN-ASTRAZENECA-2017SE74636

PATIENT
  Age: 24630 Day
  Sex: Male

DRUGS (7)
  1. TREMELIMUMAB. [Suspect]
     Active Substance: TREMELIMUMAB
     Indication: NON-SMALL CELL LUNG CANCER
     Dosage: 59.0MG ONCE/SINGLE ADMINISTRATION
     Route: 042
     Dates: start: 20170607, end: 20170607
  2. MEDI4736 [Suspect]
     Active Substance: DURVALUMAB
     Indication: NON-SMALL CELL LUNG CANCER
     Dosage: 1180.0MG ONCE/SINGLE ADMINISTRATION
     Route: 042
     Dates: start: 20170607, end: 20170607
  3. OXYCODONE AND ACETAMINOPHEN [Concomitant]
     Active Substance: ACETAMINOPHEN\OXYCODONE HYDROCHLORIDE
     Indication: NON-CARDIAC CHEST PAIN
     Route: 048
     Dates: start: 20170401, end: 20170724
  4. OXYCODONE AND ACETAMINOPHEN [Concomitant]
     Active Substance: ACETAMINOPHEN\OXYCODONE HYDROCHLORIDE
     Indication: BACK PAIN
     Route: 048
     Dates: start: 20170401, end: 20170724
  5. OXYCODONE AND ACETAMINOPHEN [Concomitant]
     Active Substance: ACETAMINOPHEN\OXYCODONE HYDROCHLORIDE
     Indication: NON-CARDIAC CHEST PAIN
     Route: 048
     Dates: start: 20170727, end: 20170729
  6. OMEPRAZOLE. [Concomitant]
     Active Substance: OMEPRAZOLE
     Indication: GASTROOESOPHAGEAL REFLUX DISEASE
     Route: 048
     Dates: end: 20170812
  7. OXYCODONE AND ACETAMINOPHEN [Concomitant]
     Active Substance: ACETAMINOPHEN\OXYCODONE HYDROCHLORIDE
     Indication: BACK PAIN
     Route: 048
     Dates: start: 20170727, end: 20170729

REACTIONS (1)
  - Autoimmune pancreatitis [Not Recovered/Not Resolved]

NARRATIVE: CASE EVENT DATE: 20170704
